FAERS Safety Report 18961366 (Version 1)
Quarter: 2021Q1

REPORT INFORMATION
  Report Type: Spontaneous
  Country: US (occurrence: US)
  Receive Date: 20210303
  Receipt Date: 20210303
  Transmission Date: 20210420
  Serious: No
  Sender: FDA-Public Use
  Company Number: US-009507513-2102USA007796

PATIENT
  Age: 17 Year
  Sex: Male

DRUGS (2)
  1. TEMODAR [Suspect]
     Active Substance: TEMOZOLOMIDE
     Indication: MEDULLOBLASTOMA RECURRENT
     Dosage: THREE CYCLES
     Route: 048
  2. BEVACIZUMAB (+) IRINOTECAN HYDROCHLORIDE [Concomitant]
     Indication: MEDULLOBLASTOMA RECURRENT
     Dosage: THREE CYCLES

REACTIONS (1)
  - Off label use [Unknown]
